FAERS Safety Report 5812022-4 (Version None)
Quarter: 2008Q3

REPORT INFORMATION
  Report Type: 
  Country: None (occurrence: None)
  Receive Date: 20080716
  Receipt Date: 20080707
  Transmission Date: 20090109
  Serious: Yes (Other)
  Sender: FDA-Public Use
  Company Number: PHNU2008DE01786

PATIENT
  Sex: Female
  Weight: 60 kg

DRUGS (5)
  1. RASILEZ [Suspect]
     Indication: HYPERTENSION
     Dosage: 1 DF, QD
     Route: 048
     Dates: start: 20080201, end: 20080203
  2. ANTIHYPERTENSIVE DRUGS [Concomitant]
  3. BISOPROLOL FUMARATE [Concomitant]
     Indication: HYPERTENSION
     Dosage: 1 DF, QD
     Route: 048
  4. ENALAPRIL MALEATE [Concomitant]
     Dosage: 1 DF, QD
  5. THYRONAJOD [Concomitant]
     Dosage: 1 DF, QD

REACTIONS (2)
  - CONVULSION [None]
  - HYPONATRAEMIA [None]
